FAERS Safety Report 14664737 (Version 1)
Quarter: 2018Q1

REPORT INFORMATION
  Report Type: Spontaneous
  Country: US (occurrence: US)
  Receive Date: 20180321
  Receipt Date: 20180321
  Transmission Date: 20180509
  Serious: No
  Sender: FDA-Public Use
  Company Number: US-SHIRE-US201810972

PATIENT
  Age: 23 Year
  Sex: Female
  Weight: 104.31 kg

DRUGS (1)
  1. CUVITRU [Suspect]
     Active Substance: HUMAN IMMUNOGLOBULIN G
     Indication: IMMUNODEFICIENCY COMMON VARIABLE
     Dosage: UNK UNK, 1X/WEEK
     Route: 065
     Dates: start: 20170406

REACTIONS (4)
  - Abdominal pain upper [Unknown]
  - Feeling abnormal [Unknown]
  - Dyspepsia [Unknown]
  - Headache [Unknown]

NARRATIVE: CASE EVENT DATE: 20180317
